FAERS Safety Report 9221557 (Version 1)
Quarter: 2013Q2

REPORT INFORMATION
  Report Type: Spontaneous
  Country: US (occurrence: US)
  Receive Date: 20130410
  Receipt Date: 20130410
  Transmission Date: 20140414
  Serious: No
  Sender: FDA-Public Use
  Company Number: US-009507513-1304USA001267

PATIENT
  Age: 85 Year
  Sex: Female

DRUGS (2)
  1. NASONEX [Suspect]
     Indication: SEASONAL ALLERGY
     Dosage: 4 DF, QD
     Route: 045
     Dates: start: 201303, end: 201303
  2. XALATAN [Concomitant]
     Dosage: 4 GTT, QD
     Route: 047
     Dates: end: 201303

REACTIONS (4)
  - Oropharyngeal pain [Recovering/Resolving]
  - Cough [Recovering/Resolving]
  - Abnormal sensation in eye [Recovering/Resolving]
  - Vision blurred [Recovering/Resolving]
